FAERS Safety Report 5501612-4 (Version None)
Quarter: 2007Q4

REPORT INFORMATION
  Report Type: 
  Country: None (occurrence: None)
  Receive Date: 20071026
  Receipt Date: 20071026
  Transmission Date: 20080405
  Serious: No
  Sender: FDA-Public Use
  Company Number: None

PATIENT
  Age: 66 Year
  Sex: Male

DRUGS (1)
  1. ZETIA [Suspect]
     Indication: HYPERLIPIDAEMIA
     Dosage: 10MG ONCE DAILY PO
     Route: 048

REACTIONS (3)
  - ASTHENIA [None]
  - MIGRAINE WITH AURA [None]
  - MYALGIA [None]
